FAERS Safety Report 4487374-0 (Version None)
Quarter: 2004Q4

REPORT INFORMATION
  Report Type: 
  Country: None (occurrence: None)
  Receive Date: 20041027
  Receipt Date: 20041012
  Transmission Date: 20050328
  Serious: Yes (Hospitalization, Disabling)
  Sender: FDA-Public Use
  Company Number: DE-MERCK-0410DEU00382

PATIENT
  Age: 70 Year
  Sex: Male

DRUGS (2)
  1. VIOXX [Suspect]
     Indication: MONARTHRITIS
     Route: 048
     Dates: start: 20031124
  2. VIOXX [Suspect]
     Route: 048
     Dates: start: 20030101, end: 20040212

REACTIONS (5)
  - ARTERIAL THROMBOSIS [None]
  - DIZZINESS [None]
  - EYELID PTOSIS [None]
  - PROCEDURAL COMPLICATION [None]
  - VISION BLURRED [None]
